FAERS Safety Report 11538670 (Version 2)
Quarter: 2015Q4

REPORT INFORMATION
  Report Type: Spontaneous
  Country: GB (occurrence: None)
  Receive Date: 20150921
  Receipt Date: 20151130
  Transmission Date: 20160304
  Serious: Yes (Hospitalization)
  Sender: FDA-Public Use
  Company Number: GB2015K5469SPO

PATIENT
  Age: 22 Year
  Sex: Female
  Weight: 70 kg

DRUGS (5)
  1. LANSOPRAZOLE GENERIC (LANSOPRAZOLE) UNKNOWN [Suspect]
     Active Substance: LANSOPRAZOLE
     Indication: GASTRITIS
     Route: 048
     Dates: start: 201504, end: 201505
  2. SALBUTAMOL [Concomitant]
     Active Substance: ALBUTEROL
  3. SERETIDE [Concomitant]
     Active Substance: FLUTICASONE FUROATE\SALMETEROL XINAFOATE
  4. LANSOPRAZOLE GENERIC (LANSOPRAZOLE) UNKNOWN [Suspect]
     Active Substance: LANSOPRAZOLE
     Indication: ABDOMINAL PAIN UPPER
     Route: 048
     Dates: start: 201504, end: 201505
  5. MARVELON (DESOGESTREL, ETHINYLOESTRADIOL) [Concomitant]

REACTIONS (22)
  - Blood pressure increased [None]
  - Depressed mood [None]
  - Feeling drunk [None]
  - Pain in extremity [None]
  - Pelvic pain [None]
  - Tachycardia [None]
  - Bone pain [None]
  - Arthralgia [None]
  - Malaise [None]
  - Hallucination [None]
  - Palpitations [None]
  - Disease recurrence [None]
  - Diarrhoea [None]
  - Dizziness [None]
  - Gastrooesophageal reflux disease [None]
  - Anxiety [None]
  - Therapy cessation [None]
  - Extrasystoles [None]
  - Drug withdrawal syndrome [None]
  - Dyspnoea [None]
  - Confusional state [None]
  - Headache [None]

NARRATIVE: CASE EVENT DATE: 201504
